FAERS Safety Report 9754346 (Version 2)
Quarter: 2014Q1

REPORT INFORMATION
  Report Type: Report from Study
  Country: US (occurrence: US)
  Receive Date: 20131213
  Receipt Date: 20140317
  Transmission Date: 20141002
  Serious: Yes (Hospitalization)
  Sender: FDA-Public Use
  Company Number: PHEH2013US025503

PATIENT
  Age: 78 Year
  Sex: Female

DRUGS (3)
  1. AFINITOR [Suspect]
     Indication: PROSTATE CANCER
     Dosage: 10 MG, QD
     Route: 048
     Dates: start: 201310
  2. AFINITOR [Suspect]
     Indication: OFF LABEL USE
     Dosage: 7 MG, QD
     Route: 048
  3. AFINITOR [Suspect]
     Dosage: 5 MG, QD
     Route: 048

REACTIONS (6)
  - Dysuria [Unknown]
  - Pulmonary thrombosis [Unknown]
  - Dyspnoea [Unknown]
  - Pneumonia [Unknown]
  - Asthenia [Unknown]
  - Pyrexia [Unknown]
